FAERS Safety Report 9340724 (Version 1)
Quarter: 2013Q2

REPORT INFORMATION
  Report Type: Spontaneous
  Country: FR (occurrence: FR)
  Receive Date: 20130610
  Receipt Date: 20130610
  Transmission Date: 20140414
  Serious: Yes (Other)
  Sender: FDA-Public Use
  Company Number: FR-GLAXOSMITHKLINE-B0898077A

PATIENT
  Age: 67 Year
  Sex: Female

DRUGS (3)
  1. LAMOTRIGINE [Suspect]
     Indication: PARTIAL SEIZURES
     Route: 065
  2. SODIUM PICOSULFATE [Suspect]
     Indication: CONSTIPATION
     Route: 065
  3. MACROGOL [Suspect]
     Indication: CONSTIPATION
     Route: 065

REACTIONS (2)
  - Partial seizures [Recovered/Resolved]
  - Drug interaction [Unknown]
